FAERS Safety Report 17032212 (Version 2)
Quarter: 2019Q4

REPORT INFORMATION
  Report Type: Report from Study
  Country: US (occurrence: US)
  Receive Date: 20191114
  Receipt Date: 20191227
  Transmission Date: 20200122
  Serious: Yes (Hospitalization, Other)
  Sender: FDA-Public Use
  Company Number: US-MALLINCKRODT-T201903718

PATIENT
  Age: 67 Year
  Sex: Female

DRUGS (3)
  1. REPOSITORY CORTICOTROPIN INJECTION [Suspect]
     Active Substance: CORTICOTROPIN
     Dosage: 80 UNITS/1ML, 1 TIME WEEKLY (SATURDAY)
     Route: 030
     Dates: start: 2019, end: 20190803
  2. REPOSITORY CORTICOTROPIN INJECTION [Suspect]
     Active Substance: CORTICOTROPIN
     Dosage: 80 UNITS/1ML, 1 TIME WEEKLY (SATURDAYS)
     Route: 030
     Dates: start: 2019, end: 20191005
  3. REPOSITORY CORTICOTROPIN INJECTION [Suspect]
     Active Substance: CORTICOTROPIN
     Indication: RHEUMATOID ARTHRITIS
     Dosage: 80 UNITS/1 ML, 1 TIME WEEKLY (SATURDAY)
     Route: 030
     Dates: start: 20190504, end: 2019

REACTIONS (21)
  - Blood iron increased [Unknown]
  - Drug ineffective [Unknown]
  - Spinal operation [Unknown]
  - Joint swelling [Recovering/Resolving]
  - Skin bacterial infection [Recovering/Resolving]
  - Inappropriate schedule of product administration [Unknown]
  - Memory impairment [Not Recovered/Not Resolved]
  - Post procedural infection [Recovering/Resolving]
  - Injection site haemorrhage [Unknown]
  - Arthralgia [Unknown]
  - Fluid retention [Unknown]
  - Blood potassium increased [Unknown]
  - Weight increased [Unknown]
  - Urinary tract infection [Recovering/Resolving]
  - Blood iron decreased [Unknown]
  - Blood potassium decreased [Unknown]
  - Condition aggravated [Unknown]
  - Sepsis [Recovering/Resolving]
  - Vein disorder [Unknown]
  - Pain in extremity [Unknown]
  - Peripheral swelling [Recovering/Resolving]

NARRATIVE: CASE EVENT DATE: 2019
